FAERS Safety Report 5583151-8 (Version None)
Quarter: 2008Q1

REPORT INFORMATION
  Report Type: 
  Country: None (occurrence: None)
  Receive Date: 20080107
  Receipt Date: 20080102
  Transmission Date: 20080703
  Serious: Yes (Hospitalization)
  Sender: FDA-Public Use
  Company Number: SE-TEVA-165908ISR

PATIENT
  Sex: Male

DRUGS (6)
  1. FLUOROURACIL [Suspect]
     Indication: COLORECTAL CANCER
     Route: 040
     Dates: start: 20071128
  2. FLUOROURACIL [Suspect]
     Route: 041
  3. FOLINIC ACID [Suspect]
     Indication: COLORECTAL CANCER
     Route: 040
     Dates: start: 20071128
  4. CETUXIMAB [Suspect]
     Indication: COLORECTAL CANCER
     Route: 042
     Dates: start: 20071128
  5. OXALIPLATIN [Suspect]
     Indication: COLORECTAL CANCER
     Route: 042
     Dates: start: 20071128
  6. BEVACIZUMAB [Suspect]
     Indication: COLORECTAL CANCER
     Route: 042
     Dates: start: 20071128

REACTIONS (1)
  - MYOCARDIAL INFARCTION [None]
